FAERS Safety Report 21746595 (Version 1)
Quarter: 2022Q4

REPORT INFORMATION
  Report Type: Spontaneous
  Country: DE (occurrence: DE)
  Receive Date: 20221219
  Receipt Date: 20221219
  Transmission Date: 20230113
  Serious: Yes (Other)
  Sender: FDA-Public Use
  Company Number: DE-BEH-2019105365

PATIENT
  Age: 81 Year
  Sex: Male
  Weight: 120 kg

DRUGS (2)
  1. HIZENTRA [Suspect]
     Active Substance: HUMAN IMMUNOGLOBULIN G
     Indication: Myasthenia gravis
     Dosage: 4 GRAM
     Route: 058
     Dates: start: 20190731
  2. HIZENTRA [Suspect]
     Active Substance: HUMAN IMMUNOGLOBULIN G
     Dosage: 100 GRAM, QMT
     Route: 065

REACTIONS (3)
  - Myasthenia gravis crisis [Not Recovered/Not Resolved]
  - No adverse event [Unknown]
  - Off label use [Unknown]
